FAERS Safety Report 18639457 (Version 2)
Quarter: 2021Q1

REPORT INFORMATION
  Report Type: Report from Study
  Country: US (occurrence: US)
  Receive Date: 20201219
  Receipt Date: 20210225
  Transmission Date: 20210419
  Serious: Yes (Death)
  Sender: FDA-Public Use
  Company Number: US-AMGEN INC.-USACT2020206303

PATIENT
  Age: 80 Year
  Sex: Male

DRUGS (5)
  1. IPILIMUMAB [Suspect]
     Active Substance: IPILIMUMAB
     Indication: MALIGNANT MELANOMA
     Dosage: 260.1 MILLIGRAM
     Route: 042
     Dates: end: 20130924
  2. DECITABINE. [Concomitant]
     Active Substance: DECITABINE
     Indication: MALIGNANT MELANOMA
     Dosage: UNK
     Dates: start: 20140121, end: 20140702
  3. PANOBINOSTAT [Concomitant]
     Active Substance: PANOBINOSTAT
     Indication: MALIGNANT MELANOMA
     Dosage: UNK
     Dates: start: 20140121, end: 20140702
  4. PEMBROLIZUMAB. [Concomitant]
     Active Substance: PEMBROLIZUMAB
     Indication: MALIGNANT MELANOMA
     Dosage: UNK
     Dates: start: 20140709, end: 20141023
  5. TEMODAR [Concomitant]
     Active Substance: TEMOZOLOMIDE
     Indication: MALIGNANT MELANOMA
     Dosage: UNK
     Dates: start: 20140121, end: 20140702

REACTIONS (1)
  - Death [Fatal]

NARRATIVE: CASE EVENT DATE: 20150114
